FAERS Safety Report 13578839 (Version 1)
Quarter: 2017Q2

REPORT INFORMATION
  Report Type: Spontaneous
  Country: US (occurrence: US)
  Receive Date: 20170524
  Receipt Date: 20170524
  Transmission Date: 20170830
  Serious: No
  Sender: FDA-Public Use
  Company Number: US-JAZZ-2017-US-005260

PATIENT
  Sex: Female

DRUGS (11)
  1. XYREM [Suspect]
     Active Substance: SODIUM OXYBATE
     Dosage: 4.5 G, BID
     Route: 064
     Dates: start: 201509, end: 2016
  2. CYCLOBENZAPRINE. [Concomitant]
     Active Substance: CYCLOBENZAPRINE
     Route: 064
  3. MOTRIN [Concomitant]
     Active Substance: IBUPROFEN
     Route: 064
  4. TYLENOL [Concomitant]
     Active Substance: ACETAMINOPHEN
     Route: 064
  5. LOSARTAN POTASSIUM. [Concomitant]
     Active Substance: LOSARTAN POTASSIUM
     Route: 064
  6. ADDERALL [Concomitant]
     Active Substance: AMPHETAMINE ASPARTATE\AMPHETAMINE SULFATE\DEXTROAMPHETAMINE SACCHARATE\DEXTROAMPHETAMINE SULFATE
     Route: 064
  7. OMEGA 3 FISH OIL                   /01334101/ [Concomitant]
     Active Substance: FISH OIL
     Route: 064
  8. FOLIC ACID. [Concomitant]
     Active Substance: FOLIC ACID
     Route: 064
  9. TRETINOIN. [Concomitant]
     Active Substance: TRETINOIN
     Route: 064
  10. XYREM [Suspect]
     Active Substance: SODIUM OXYBATE
     Indication: MATERNAL EXPOSURE TIMING UNSPECIFIED
     Dosage: 2.25 G, BID
     Route: 064
     Dates: start: 200506, end: 201503
  11. XYREM [Suspect]
     Active Substance: SODIUM OXYBATE
     Dosage: 3 G, BID
     Route: 064
     Dates: start: 201503, end: 2015

REACTIONS (1)
  - Foetal exposure during pregnancy [Unknown]
